FAERS Safety Report 9775358 (Version 2)
Quarter: 2013Q4

REPORT INFORMATION
  Report Type: Spontaneous
  Country: US (occurrence: US)
  Receive Date: 20131220
  Receipt Date: 20131220
  Transmission Date: 20140711
  Serious: No
  Sender: FDA-Public Use
  Company Number: US-PFIZER INC-2013282592

PATIENT
  Sex: Male

DRUGS (1)
  1. CHANTIX [Suspect]
     Dosage: UNK

REACTIONS (3)
  - Circumstance or information capable of leading to medication error [Unknown]
  - Abnormal dreams [Unknown]
  - Nausea [Unknown]
